FAERS Safety Report 10629029 (Version 1)
Quarter: 2014Q4

REPORT INFORMATION
  Report Type: Spontaneous
  Country: US (occurrence: None)
  Receive Date: 20141203
  Receipt Date: 20141203
  Transmission Date: 20150529
  Serious: Yes (Other)
  Sender: FDA-Public Use
  Company Number: None

PATIENT
  Age: 45 Year
  Sex: Female
  Weight: 63.5 kg

DRUGS (2)
  1. VENLAFAXINE [Suspect]
     Active Substance: VENLAFAXINE HYDROCHLORIDE
     Indication: DEPRESSION
     Dosage: 1 PER DAY, ONCE DAILY, TAKEN BY MOUTH
     Route: 048
     Dates: start: 20141101, end: 20141130
  2. VENLAFAXINE [Suspect]
     Active Substance: VENLAFAXINE HYDROCHLORIDE
     Indication: ANXIETY
     Dosage: 1 PER DAY, ONCE DAILY, TAKEN BY MOUTH
     Route: 048
     Dates: start: 20141101, end: 20141130

REACTIONS (6)
  - Emotional disorder [None]
  - Product substitution issue [None]
  - Panic attack [None]
  - Product quality issue [None]
  - Crying [None]
  - Depression [None]

NARRATIVE: CASE EVENT DATE: 20141101
